FAERS Safety Report 20961847 (Version 1)
Quarter: 2022Q2

REPORT INFORMATION
  Report Type: Spontaneous
  Country: US (occurrence: US)
  Receive Date: 20220615
  Receipt Date: 20220615
  Transmission Date: 20220721
  Serious: Yes (Other)
  Sender: FDA-Public Use
  Company Number: US-MYLANLABS-2022M1044783

PATIENT
  Age: 6 Decade
  Sex: Female

DRUGS (3)
  1. DILTIAZEM [Suspect]
     Active Substance: DILTIAZEM
     Indication: Dermatomyositis
     Dosage: 60 MILLIGRAM, QD
  2. RITUXIMAB [Suspect]
     Active Substance: RITUXIMAB
     Indication: Dermatomyositis
     Dosage: 1 GRAM, EVERY 15 DAYS, 1G/15 DAYS EVERY 6 MONTHS
  3. SODIUM THIOSULFATE [Suspect]
     Active Substance: SODIUM THIOSULFATE
     Indication: Dermatomyositis
     Dosage: 25 GRAM, FOR 3DAYS EVERY WEEK

REACTIONS (2)
  - Treatment failure [Unknown]
  - Off label use [Unknown]
